FAERS Safety Report 15666045 (Version 3)
Quarter: 2019Q1

REPORT INFORMATION
  Report Type: Spontaneous
  Country: US (occurrence: US)
  Receive Date: 20181128
  Receipt Date: 20190211
  Transmission Date: 20190417
  Serious: No
  Sender: FDA-Public Use
  Company Number: US-PFIZER INC-2018478934

PATIENT
  Age: 46 Year
  Sex: Female

DRUGS (13)
  1. DICLOFENAC [Suspect]
     Active Substance: DICLOFENAC
     Dosage: UNK
     Route: 048
  2. CELECOXIB. [Suspect]
     Active Substance: CELECOXIB
     Dosage: UNK
     Route: 048
  3. INDOMETHACIN. [Suspect]
     Active Substance: INDOMETHACIN
     Dosage: UNK
  4. MELOXICAM. [Suspect]
     Active Substance: MELOXICAM
     Dosage: UNK
  5. TOLMETIN [Suspect]
     Active Substance: TOLMETIN
     Dosage: UNK
  6. KETOPROFEN. [Suspect]
     Active Substance: KETOPROFEN
     Dosage: UNK
  7. ASPIRIN (E.C.) [Suspect]
     Active Substance: ASPIRIN
     Dosage: UNK
  8. KETOROLAC TROMETHAMINE. [Suspect]
     Active Substance: KETOROLAC TROMETHAMINE
     Dosage: UNK
  9. NABUMETONE. [Suspect]
     Active Substance: NABUMETONE
     Dosage: UNK
  10. OXAPROZIN. [Suspect]
     Active Substance: OXAPROZIN
     Dosage: UNK
     Route: 048
  11. DIFLUNISAL. [Suspect]
     Active Substance: DIFLUNISAL
     Dosage: UNK
  12. IBUPROFEN. [Suspect]
     Active Substance: IBUPROFEN
     Dosage: UNK
  13. NAPROXEN. [Suspect]
     Active Substance: NAPROXEN
     Dosage: UNK

REACTIONS (6)
  - Nausea [Unknown]
  - Abdominal pain upper [Unknown]
  - Feeding disorder [Unknown]
  - Condition aggravated [Unknown]
  - Gastritis [Unknown]
  - Gastrooesophageal reflux disease [Unknown]
